FAERS Safety Report 6864899-1 (Version None)
Quarter: 2010Q3

REPORT INFORMATION
  Report Type: 
  Country: None (occurrence: None)
  Receive Date: 20100721
  Receipt Date: 20080410
  Transmission Date: 20110219
  Serious: No
  Sender: FDA-Public Use
  Company Number: US-PFIZER INC-2008030891

PATIENT
  Sex: Female
  Weight: 46.7 kg

DRUGS (4)
  1. CHANTIX [Suspect]
     Indication: SMOKING CESSATION THERAPY
     Route: 048
     Dates: start: 20080405
  2. MOTRIN [Concomitant]
     Route: 048
  3. FIORINAL [Concomitant]
     Indication: MIGRAINE
  4. SPIRONOL [Concomitant]
     Indication: MIGRAINE
     Route: 048

REACTIONS (3)
  - INSOMNIA [None]
  - NAUSEA [None]
  - VOMITING [None]
